FAERS Safety Report 9379838 (Version 1)
Quarter: 2013Q3

REPORT INFORMATION
  Report Type: Spontaneous
  Country: US (occurrence: None)
  Receive Date: 20130701
  Receipt Date: 20130701
  Transmission Date: 20140515
  Serious: Yes (Hospitalization)
  Sender: FDA-Public Use
  Company Number: None

PATIENT
  Age: 68 Year
  Sex: Male
  Weight: 91.8 kg

DRUGS (1)
  1. RITUXIMAB [Suspect]
     Route: 042
     Dates: start: 20130625, end: 20130625

REACTIONS (2)
  - Atrial fibrillation [None]
  - Respiratory distress [None]
